FAERS Safety Report 8816084 (Version 3)
Quarter: 2012Q4

REPORT INFORMATION
  Report Type: 
  Country: US (occurrence: US)
  Receive Date: 20120928
  Receipt Date: 20121030
  Transmission Date: 20130627
  Serious: Yes (Hospitalization, Other)
  Sender: FDA-Public Use
  Company Number: US-PFIZER INC-2012239632

PATIENT
  Age: 42 Year
  Sex: Female
  Weight: 51.2 kg

DRUGS (9)
  1. PRISTIQ [Suspect]
     Indication: POST-TRAUMATIC STRESS DISORDER
     Dosage: 50 mg, Daily
     Route: 048
  2. PRISTIQ [Suspect]
     Indication: BIPOLAR DISORDER
     Dosage: 50 mg, alternate day
     Route: 048
     Dates: end: 201209
  3. LITHIUM CARBONATE [Suspect]
     Indication: POST-TRAUMATIC STRESS DISORDER
     Dosage: 900 mg, 3x/day
     Dates: start: 2008
  4. LITHIUM CARBONATE [Suspect]
     Indication: BIPOLAR DISORDER
  5. XANAX [Suspect]
     Indication: ANXIETY
     Dosage: 0.5 mg, as needed
     Route: 048
  6. XANAX [Suspect]
     Dosage: 1 mg, as needed
     Route: 048
  7. XANAX [Suspect]
     Dosage: UNK, as needed
     Route: 048
  8. VALIUM [Concomitant]
     Indication: ANXIETY
     Dosage: 10 mg, 2x/day
     Route: 048
     Dates: start: 2012
  9. VALIUM [Concomitant]
     Indication: SLEEP DISORDER

REACTIONS (11)
  - Intentional drug misuse [Unknown]
  - Apparent death [Unknown]
  - Toxicity to various agents [Unknown]
  - Disturbance in attention [Not Recovered/Not Resolved]
  - Activities of daily living impaired [Not Recovered/Not Resolved]
  - Tachyphrenia [Not Recovered/Not Resolved]
  - Frustration [Not Recovered/Not Resolved]
  - Crying [Not Recovered/Not Resolved]
  - Renal disorder [Unknown]
  - Nasopharyngitis [Not Recovered/Not Resolved]
  - Drug ineffective [Unknown]
